FAERS Safety Report 9031115 (Version 1)
Quarter: 2013Q1

REPORT INFORMATION
  Report Type: Spontaneous
  Country: US (occurrence: US)
  Receive Date: 20130123
  Receipt Date: 20130123
  Transmission Date: 20140127
  Serious: Yes (Other)
  Sender: FDA-Public Use
  Company Number: US-PFIZER INC-2012303391

PATIENT
  Age: 41 Year
  Sex: Female

DRUGS (1)
  1. XALKORI [Suspect]
     Indication: LUNG NEOPLASM MALIGNANT
     Dosage: 250 MG, 2X/DAY
     Route: 048
     Dates: start: 20120904

REACTIONS (16)
  - Rectal haemorrhage [Unknown]
  - Abdominal pain [Unknown]
  - Nausea [Unknown]
  - Dysgeusia [Unknown]
  - Limb discomfort [Unknown]
  - Fatigue [Unknown]
  - Oedema peripheral [Unknown]
  - Dyspnoea [Unknown]
  - Weight increased [Unknown]
  - Hypoalbuminaemia [Unknown]
  - Transaminases increased [Unknown]
  - Skin sensitisation [Unknown]
  - Pleural effusion [Unknown]
  - Disease progression [Unknown]
  - Lung neoplasm malignant [Unknown]
  - Cough [Unknown]
